FAERS Safety Report 4654107-4 (Version None)
Quarter: 2005Q2

REPORT INFORMATION
  Report Type: 
  Country: None (occurrence: None)
  Receive Date: 20050505
  Receipt Date: 20050429
  Transmission Date: 20051028
  Serious: Yes (Hospitalization)
  Sender: FDA-Public Use
  Company Number: CM-MERCK-0505USA00112

PATIENT
  Age: 33 Year
  Sex: Male

DRUGS (1)
  1. MECTIZAN [Suspect]
     Route: 048
     Dates: start: 20050323, end: 20050323

REACTIONS (7)
  - ABNORMAL BEHAVIOUR [None]
  - ARTHRALGIA [None]
  - DELUSION [None]
  - DISORIENTATION [None]
  - ENCEPHALOPATHY [None]
  - HEADACHE [None]
  - PYREXIA [None]
